FAERS Safety Report 23686133 (Version 1)
Quarter: 2024Q1

REPORT INFORMATION
  Report Type: Spontaneous
  Country: US (occurrence: US)
  Receive Date: 20240329
  Receipt Date: 20240329
  Transmission Date: 20240410
  Serious: Yes (Hospitalization, Other)
  Sender: FDA-Public Use
  Company Number: US-SUN PHARMACEUTICAL INDUSTRIES LTD-2024R1-438864

PATIENT

DRUGS (3)
  1. IMATINIB [Suspect]
     Active Substance: IMATINIB
     Indication: Disease recurrence
     Dosage: 340 MILLIGRAM/SQ. METER DAILY
     Route: 065
  2. SIROLIMUS [Suspect]
     Active Substance: SIROLIMUS
     Indication: Disease progression
     Dosage: 1 MILLIGRAM/SQ. METER
     Route: 065
  3. SIROLIMUS [Suspect]
     Active Substance: SIROLIMUS
     Dosage: 0.25 MILLIGRAM/SQ. METER, DAILY
     Route: 065

REACTIONS (5)
  - Therapeutic response decreased [Unknown]
  - Pyrexia [Unknown]
  - Face oedema [Unknown]
  - Oedema peripheral [Unknown]
  - Thrombocytopenia [Unknown]
